FAERS Safety Report 7197930-7 (Version None)
Quarter: 2010Q4

REPORT INFORMATION
  Report Type: 
  Country: None (occurrence: None)
  Receive Date: 20101209
  Receipt Date: 20101206
  Transmission Date: 20110411
  Serious: Yes (Hospitalization, Other)
  Sender: FDA-Public Use
  Company Number: 2010SP042284

PATIENT
  Age: 39 Year
  Sex: Female
  Weight: 92.0802 kg

DRUGS (4)
  1. NUVARING [Suspect]
     Indication: CONTRACEPTION
     Dates: start: 20050101, end: 20070819
  2. LOPRESSOR [Suspect]
     Indication: PRODUCT USED FOR UNKNOWN INDICATION
  3. DECONGESTANT [Suspect]
     Indication: RHINITIS
  4. PROZAC [Concomitant]

REACTIONS (37)
  - ARTERIOSCLEROSIS CORONARY ARTERY [None]
  - ASTHMA [None]
  - BACK DISORDER [None]
  - BRONCHITIS [None]
  - CAROTID BRUIT [None]
  - CONJUNCTIVITIS [None]
  - CYSTITIS [None]
  - DEEP VEIN THROMBOSIS [None]
  - DRUG DOSE OMISSION [None]
  - DRUG INTOLERANCE [None]
  - DRY SKIN [None]
  - DYSPNOEA [None]
  - ELECTROCARDIOGRAM ST-T CHANGE [None]
  - ENDOMETRIOSIS [None]
  - FATIGUE [None]
  - GASTROOESOPHAGEAL REFLUX DISEASE [None]
  - HEADACHE [None]
  - HOT FLUSH [None]
  - HYPERSENSITIVITY [None]
  - HYPERTENSION [None]
  - HYPOAESTHESIA [None]
  - NECK PAIN [None]
  - NEURALGIA [None]
  - OXYGEN SATURATION DECREASED [None]
  - PALPITATIONS [None]
  - PHLEBITIS [None]
  - QRS AXIS ABNORMAL [None]
  - RADICULOPATHY [None]
  - RHINITIS [None]
  - SINUSITIS [None]
  - SKIN FISSURES [None]
  - SURGERY [None]
  - TACHYCARDIA [None]
  - TREATMENT NONCOMPLIANCE [None]
  - TREMOR [None]
  - UPPER RESPIRATORY TRACT INFECTION [None]
  - URINARY TRACT INFECTION [None]
